FAERS Safety Report 17023837 (Version 3)
Quarter: 2020Q2

REPORT INFORMATION
  Report Type: Report from Study
  Country: JP (occurrence: JP)
  Receive Date: 20191113
  Receipt Date: 20200407
  Transmission Date: 20200713
  Serious: Yes (Life-Threatening, Hospitalization, Other)
  Sender: FDA-Public Use
  Company Number: JP-ROCHE-2466434

PATIENT
  Age: 67 Year
  Sex: Female
  Weight: 43 kg

DRUGS (2)
  1. ATEZOLIZUMAB. [Suspect]
     Active Substance: ATEZOLIZUMAB
     Indication: LUNG ADENOCARCINOMA
     Route: 041
     Dates: start: 20180905, end: 20180905
  2. LIXIANA [Suspect]
     Active Substance: EDOXABAN TOSYLATE
     Indication: PRODUCT USED FOR UNKNOWN INDICATION
     Route: 048

REACTIONS (10)
  - Deep vein thrombosis [Recovered/Resolved]
  - Large intestinal haemorrhage [Recovered/Resolved]
  - Mitral valve incompetence [Recovered/Resolved]
  - Renal infarct [Recovered/Resolved]
  - Endocarditis noninfective [Unknown]
  - Pulmonary embolism [Recovered/Resolved]
  - Non-small cell lung cancer recurrent [Recovered/Resolved]
  - Disseminated intravascular coagulation [Unknown]
  - Peripheral embolism [Unknown]
  - Cerebral infarction [Unknown]

NARRATIVE: CASE EVENT DATE: 20180925
